FAERS Safety Report 4508857-0 (Version None)
Quarter: 2004Q4

REPORT INFORMATION
  Report Type: 
  Country: None (occurrence: None)
  Receive Date: 20041122
  Receipt Date: 20041122
  Transmission Date: 20050328
  Serious: No
  Sender: FDA-Public Use
  Company Number: None

PATIENT
  Age: 11 Year
  Sex: Male
  Weight: 34.1105 kg

DRUGS (3)
  1. TOPIRMATE [Suspect]
     Indication: CONVULSION
     Dosage: 100 MG PO BID
     Route: 048
     Dates: end: 20040312
  2. ATOMOXETINE [Concomitant]
  3. OLANZAPINE [Concomitant]

REACTIONS (1)
  - WEIGHT DECREASED [None]
